FAERS Safety Report 21722084 (Version 1)
Quarter: 2022Q4

REPORT INFORMATION
  Report Type: Spontaneous
  Country: US (occurrence: None)
  Receive Date: 20221212
  Receipt Date: 20221212
  Transmission Date: 20230112
  Serious: No
  Sender: FDA-Public Use
  Company Number: None

PATIENT
  Age: 63 Year
  Sex: Female

DRUGS (1)
  1. TASIGNA [Suspect]
     Active Substance: NILOTINIB
     Dosage: FREQUENCY : DAILY;?
     Route: 048

REACTIONS (2)
  - Therapy interrupted [None]
  - Respiratory disorder [None]

NARRATIVE: CASE EVENT DATE: 20221001
